FAERS Safety Report 9406486 (Version 2)
Quarter: 2013Q4

REPORT INFORMATION
  Report Type: Report from Study
  Country: US (occurrence: US)
  Receive Date: 20130718
  Receipt Date: 20131228
  Transmission Date: 20140711
  Serious: Yes (Hospitalization)
  Sender: FDA-Public Use
  Company Number: US-ROCHE-1250141

PATIENT
  Age: 55 Year
  Sex: Female

DRUGS (4)
  1. BEVACIZUMAB [Suspect]
     Indication: NON-SMALL CELL LUNG CANCER
     Dosage: OVER 30-90MINUTES FOR CYCLES 1-6 AND OVER 30 MINS FOR CYCLES 7+, START DATE OF 2ND COURSE:23/MAY/201
     Route: 042
     Dates: start: 20130502
  2. PACLITAXEL [Suspect]
     Indication: NON-SMALL CELL LUNG CANCER
     Dosage: OVER 3 HRS, START DATE OF 2ND COURSE:23/MAY/2013, LAST DOSE (420 MG) ON 23/MAY/2013
     Route: 042
     Dates: start: 20130502
  3. CARBOPLATIN [Suspect]
     Indication: NON-SMALL CELL LUNG CANCER
     Dosage: AUC=6, OVER 30 MINS, START DATE OF 2ND COURSE: 23/MAY/2013, LAST DOSE (900 MG) ON 23/MAY/2013
     Route: 042
     Dates: start: 20130502
  4. IMC-A12 [Suspect]
     Indication: NON-SMALL CELL LUNG CANCER
     Dosage: START DATE OF 2 CYCLE:23/MAY/2013, LAST DOSE(532.5 MG): 23/MAY/2013, OVER 1 HOUR
     Route: 042
     Dates: start: 20130502

REACTIONS (3)
  - Pleural effusion [Recovered/Resolved]
  - Nausea [Unknown]
  - Pain [Unknown]
